FAERS Safety Report 24544371 (Version 4)
Quarter: 2025Q4

REPORT INFORMATION
  Report Type: Report from Study
  Country: CA (occurrence: CA)
  Receive Date: 20241024
  Receipt Date: 20251112
  Transmission Date: 20260118
  Serious: Yes (Life-Threatening, Other)
  Sender: GILEAD
  Company Number: CA-GSK-CA2024AMR127687

PATIENT
  Age: 54 Year
  Sex: Male

DRUGS (1)
  1. AMBRISENTAN [Suspect]
     Active Substance: AMBRISENTAN
     Indication: Pulmonary hypertension
     Dosage: 10 MG, QD
     Route: 048
     Dates: start: 20240830

REACTIONS (4)
  - Renal failure [Unknown]
  - Hepatic failure [Unknown]
  - Respiratory failure [Unknown]
  - Hepatic cirrhosis [Unknown]
